FAERS Safety Report 7184934-3 (Version None)
Quarter: 2010Q4

REPORT INFORMATION
  Report Type: 
  Country: None (occurrence: None)
  Receive Date: 20101222
  Receipt Date: 20100527
  Transmission Date: 20110411
  Serious: No
  Sender: FDA-Public Use
  Company Number: US-AMGEN-KDL415170

PATIENT

DRUGS (2)
  1. ENBREL [Suspect]
     Indication: RHEUMATOID ARTHRITIS
     Dosage: 50 MG, QWK
     Route: 058
     Dates: start: 20050328
  2. ENBREL [Suspect]
     Indication: PSORIASIS

REACTIONS (4)
  - JOINT SWELLING [None]
  - ONYCHALGIA [None]
  - RHEUMATOID ARTHRITIS [None]
  - VULVOVAGINAL MYCOTIC INFECTION [None]
